FAERS Safety Report 18530848 (Version 2)
Quarter: 2020Q4

REPORT INFORMATION
  Report Type: Report from Study
  Country: CA (occurrence: CA)
  Receive Date: 20201121
  Receipt Date: 20201128
  Transmission Date: 20210114
  Serious: Yes (Death)
  Sender: FDA-Public Use
  Company Number: CA-TAKEDA-CA202003398

PATIENT
  Age: 68 Year
  Sex: Male
  Weight: 63 kg

DRUGS (3)
  1. HUMAN NORMAL IMMUNOGLOBULIN; LIQUID 20 [Suspect]
     Active Substance: HUMAN IMMUNOGLOBULIN G
     Indication: SECONDARY IMMUNODEFICIENCY
     Dosage: 6 GRAM, 1X/WEEK
     Route: 058
     Dates: start: 20200123, end: 20201115
  2. HUMAN NORMAL IMMUNOGLOBULIN; LIQUID 20 [Suspect]
     Active Substance: HUMAN IMMUNOGLOBULIN G
     Dosage: UNK UNK, 1X/WEEK
     Route: 058
  3. HUMAN NORMAL IMMUNOGLOBULIN; LIQUID 20 [Suspect]
     Active Substance: HUMAN IMMUNOGLOBULIN G
     Dosage: UNK
     Route: 065
     Dates: start: 20200206

REACTIONS (3)
  - Diarrhoea [Unknown]
  - Infusion site erythema [Recovered/Resolved]
  - Fall [Fatal]

NARRATIVE: CASE EVENT DATE: 2020
